FAERS Safety Report 8158141-1 (Version None)
Quarter: 2012Q1

REPORT INFORMATION
  Report Type: 
  Country: None (occurrence: None)
  Receive Date: 20120222
  Receipt Date: 20120216
  Transmission Date: 20120608
  Serious: Yes (Hospitalization, Other)
  Sender: FDA-Public Use
  Company Number: GXKR2012DE000873

PATIENT

DRUGS (6)
  1. PREDNISOLONE [Suspect]
     Indication: CROHN'S DISEASE
     Dosage: 15 MG/DAY (GW 15-27.5)
     Route: 048
  2. METHYLPREDNISOLONE [Suspect]
     Indication: CROHN'S DISEASE
     Dosage: HIGH DOSAGE, NO MORE DETAILS
     Route: 065
     Dates: start: 20090126, end: 20090205
  3. FOLIC ACID [Concomitant]
     Indication: PROPHYLAXIS OF NEURAL TUBE DEFECT
     Dosage: 0.4 [MG/D ]
     Route: 048
  4. AZATHIOPRINE [Suspect]
     Indication: CROHN'S DISEASE
     Dosage: 150 [MG/D ]/ UNTIL GW 4.3 AND 18-27.5
     Route: 048
     Dates: start: 20080726
  5. REMICADE [Suspect]
     Indication: CROHN'S DISEASE
     Dosage: 300 [MG/EVERY 8 WKS]
     Route: 042
  6. METAFOLIN [Concomitant]
     Indication: PROPHYLAXIS OF NEURAL TUBE DEFECT

REACTIONS (3)
  - PREMATURE SEPARATION OF PLACENTA [None]
  - HELLP SYNDROME [None]
  - MATERNAL EXPOSURE DURING PREGNANCY [None]
